FAERS Safety Report 13851502 (Version 1)
Quarter: 2017Q3

REPORT INFORMATION
  Report Type: Report from Study
  Country: JP (occurrence: JP)
  Receive Date: 20170810
  Receipt Date: 20170810
  Transmission Date: 20171127
  Serious: Yes (Hospitalization)
  Sender: FDA-Public Use
  Company Number: JP-AMGEN-JPNCT2015112779

PATIENT
  Age: 45 Year
  Sex: Female
  Weight: 60 kg

DRUGS (23)
  1. MUCOSTA [Concomitant]
     Active Substance: REBAMIPIDE
     Indication: PROPHYLAXIS
     Dosage: UNK
     Route: 048
  2. ROMIPLOSTIM [Suspect]
     Active Substance: ROMIPLOSTIM
     Indication: IMMUNE THROMBOCYTOPENIC PURPURA
     Dosage: 2 MUG/KG, QWK
     Route: 058
     Dates: start: 20140219
  3. ROMIPLOSTIM [Suspect]
     Active Substance: ROMIPLOSTIM
     Dosage: 4 MUG/KG, QWK
     Route: 058
     Dates: start: 20140305
  4. BAKTAR [Concomitant]
     Active Substance: SULFAMETHOXAZOLE\TRIMETHOPRIM
     Indication: PROPHYLAXIS
     Dosage: UNK
     Route: 048
  5. PREDNISOLONE. [Concomitant]
     Active Substance: PREDNISOLONE
     Dosage: 4 MG, UNK
     Route: 048
     Dates: start: 20141203, end: 20150203
  6. LOXONIN [Concomitant]
     Active Substance: LOXOPROFEN SODIUM
     Indication: HEADACHE
     Dosage: UNK
     Route: 048
  7. ROMIPLOSTIM [Suspect]
     Active Substance: ROMIPLOSTIM
     Dosage: 7 MUG/KG, QWK
     Route: 058
     Dates: start: 20140528
  8. CEPHARANTHINE [Concomitant]
     Active Substance: CEPHARANTHINE
     Indication: IMMUNE THROMBOCYTOPENIC PURPURA
     Dosage: 6 MG, UNK
     Route: 048
     Dates: start: 20140806
  9. ROMIPLOSTIM [Suspect]
     Active Substance: ROMIPLOSTIM
     Dosage: 7 MUG/KG, QWK
     Route: 058
     Dates: start: 20141229
  10. PREDNISOLONE. [Concomitant]
     Active Substance: PREDNISOLONE
     Indication: IMMUNE THROMBOCYTOPENIC PURPURA
     Dosage: 8 MG, UNK
     Route: 048
     Dates: start: 20140903, end: 20141007
  11. PREDNISOLONE. [Concomitant]
     Active Substance: PREDNISOLONE
     Dosage: 6 MG, UNK
     Route: 048
     Dates: start: 20141008, end: 20141202
  12. PREDONINE [Suspect]
     Active Substance: PREDNISOLONE
     Dosage: 12.5 MG, UNK
     Route: 048
     Dates: start: 20140318, end: 20140415
  13. PREDONINE [Suspect]
     Active Substance: PREDNISOLONE
     Dosage: 5 MG, UNK
     Route: 048
     Dates: start: 20140514, end: 20140708
  14. PREDONINE [Suspect]
     Active Substance: PREDNISOLONE
     Dosage: 15 MG, UNK
     Route: 048
     Dates: start: 20140709, end: 20140805
  15. PREDONINE [Suspect]
     Active Substance: PREDNISOLONE
     Dosage: 10 MG, UNK
     Route: 048
     Dates: start: 20140806, end: 20140902
  16. LIPITOR [Concomitant]
     Active Substance: ATORVASTATIN CALCIUM
     Indication: HYPERLIPIDAEMIA
     Dosage: UNK
     Route: 048
  17. PREDONINE [Suspect]
     Active Substance: PREDNISOLONE
     Indication: IMMUNE THROMBOCYTOPENIC PURPURA
     Dosage: 15 MG, UNK
     Route: 048
     Dates: start: 20140205, end: 20140318
  18. FAMOTIDINE. [Concomitant]
     Active Substance: FAMOTIDINE
     Indication: PROPHYLAXIS
     Dosage: UNK
     Route: 048
  19. BONALON [Concomitant]
     Active Substance: ALENDRONATE SODIUM
     Dosage: 35 MG, UNK
     Route: 048
  20. PREDNISOLONE. [Concomitant]
     Active Substance: PREDNISOLONE
     Dosage: 3 MG, UNK
     Route: 048
     Dates: start: 20150204
  21. ROMIPLOSTIM [Suspect]
     Active Substance: ROMIPLOSTIM
     Dosage: 6 MUG/KG, QWK
     Route: 058
     Dates: start: 20140402
  22. PREDONINE [Suspect]
     Active Substance: PREDNISOLONE
     Dosage: 10 MG, UNK
     Route: 048
     Dates: start: 20140416, end: 20140429
  23. PREDONINE [Suspect]
     Active Substance: PREDNISOLONE
     Dosage: 7.5 MG, UNK
     Route: 048
     Dates: start: 20140430, end: 20140513

REACTIONS (2)
  - Hydronephrosis [Recovering/Resolving]
  - Headache [Recovered/Resolved]

NARRATIVE: CASE EVENT DATE: 20140402
